FAERS Safety Report 5806818-2 (Version None)
Quarter: 2008Q3

REPORT INFORMATION
  Report Type: 
  Country: None (occurrence: None)
  Receive Date: 20080711
  Receipt Date: 20080630
  Transmission Date: 20090109
  Serious: Yes (Other)
  Sender: FDA-Public Use
  Company Number: US-BAYER-200827289NA

PATIENT
  Sex: Female

DRUGS (3)
  1. MAGNEVIST [Suspect]
     Indication: COMPUTERISED TOMOGRAM
  2. OMNISCAN [Suspect]
     Indication: COMPUTERISED TOMOGRAM
  3. OPTIMARK [Suspect]
     Indication: COMPUTERISED TOMOGRAM

REACTIONS (10)
  - ANXIETY [None]
  - EMOTIONAL DISTRESS [None]
  - FIBROSIS [None]
  - INJURY [None]
  - MOBILITY DECREASED [None]
  - NEPHROGENIC SYSTEMIC FIBROSIS [None]
  - PAIN [None]
  - QUALITY OF LIFE DECREASED [None]
  - SKIN HYPERTROPHY [None]
  - SKIN INDURATION [None]
